FAERS Safety Report 23622832 (Version 1)
Quarter: 2024Q1

REPORT INFORMATION
  Report Type: Spontaneous
  Country: US (occurrence: US)
  Receive Date: 20240312
  Receipt Date: 20240312
  Transmission Date: 20240410
  Serious: No
  Sender: FDA-Public Use
  Company Number: US-PFIZER INC-PV202400033887

PATIENT
  Age: 58 Year
  Sex: Female

DRUGS (1)
  1. INLYTA [Suspect]
     Active Substance: AXITINIB
     Dosage: 5 MG
     Dates: end: 20240307

REACTIONS (5)
  - Influenza [Unknown]
  - Fatigue [Unknown]
  - Pruritus [Unknown]
  - Hyperaesthesia teeth [Unknown]
  - Gingival pain [Unknown]

NARRATIVE: CASE EVENT DATE: 20240307
